FAERS Safety Report 10786411 (Version 2)
Quarter: 2015Q1

REPORT INFORMATION
  Report Type: Report from Study
  Country: US (occurrence: US)
  Receive Date: 20150211
  Receipt Date: 20150304
  Transmission Date: 20150721
  Serious: Yes (Other)
  Sender: FDA-Public Use
  Company Number: US-ASTRAZENECA-2015SE11267

PATIENT
  Age: 1091 Month
  Sex: Female

DRUGS (1)
  1. BRILINTA [Suspect]
     Active Substance: TICAGRELOR
     Route: 048

REACTIONS (4)
  - Blindness [Not Recovered/Not Resolved]
  - Activities of daily living impaired [Unknown]
  - Cerebrovascular accident [Unknown]
  - Speech disorder [Unknown]

NARRATIVE: CASE EVENT DATE: 201411
